FAERS Safety Report 9996443 (Version 1)
Quarter: 2014Q1

REPORT INFORMATION
  Report Type: Spontaneous
  Country: US (occurrence: None)
  Receive Date: 20140228
  Receipt Date: 20140228
  Transmission Date: 20141002
  Serious: Yes (Other)
  Sender: FDA-Public Use
  Company Number: US-JNJFOC-20130815006

PATIENT
  Age: 29 Year
  Sex: Female

DRUGS (2)
  1. IBUPROFEN [Suspect]
     Indication: PRODUCT USED FOR UNKNOWN INDICATION
  2. ENBREL [Suspect]
     Indication: PSORIATIC ARTHROPATHY
     Dosage: 50 MG, 2 IN 1 WEEK, UNKNOWN
     Dates: start: 20130808

REACTIONS (11)
  - Haematemesis [None]
  - Spinal pain [None]
  - Weight decreased [None]
  - Arthralgia [None]
  - Finger deformity [None]
  - Neck pain [None]
  - Pain in extremity [None]
  - Nausea [None]
  - Ulcer [None]
  - Dyspepsia [None]
  - Abdominal pain [None]
